FAERS Safety Report 7790674-X (Version None)
Quarter: 2011Q3

REPORT INFORMATION
  Report Type: 
  Country: None (occurrence: None)
  Receive Date: 20110930
  Receipt Date: 20110920
  Transmission Date: 20111222
  Serious: Yes (Other)
  Sender: FDA-Public Use
  Company Number: BR-US-EMD SERONO, INC.-7003593

PATIENT
  Sex: Female

DRUGS (9)
  1. REBIF [Suspect]
     Indication: RELAPSING-REMITTING MULTIPLE SCLEROSIS
     Route: 058
     Dates: start: 20070601
  2. IBUPROFEN [Concomitant]
     Indication: PREMEDICATION
  3. NEULEPTIL [Concomitant]
  4. MANTIDAN [Concomitant]
  5. REBIF [Suspect]
     Route: 058
     Dates: start: 20100128
  6. OMEPRAZOLE [Concomitant]
  7. CLONAZEPAM [Concomitant]
  8. GINKGO BILOBA [Concomitant]
  9. TOPIRAMATE [Concomitant]

REACTIONS (21)
  - HYPERTHYROIDISM [None]
  - ARTHRALGIA [None]
  - WRONG TECHNIQUE IN DRUG USAGE PROCESS [None]
  - DIZZINESS [None]
  - THYROIDITIS [None]
  - MUSCULAR WEAKNESS [None]
  - APATHY [None]
  - INSOMNIA [None]
  - SERUM FERRITIN DECREASED [None]
  - HYPERTENSION [None]
  - MULTIPLE SCLEROSIS RELAPSE [None]
  - PYREXIA [None]
  - INJECTION SITE NODULE [None]
  - TREMOR [None]
  - HEADACHE [None]
  - COLD SWEAT [None]
  - INJECTION SITE ERYTHEMA [None]
  - SYNCOPE [None]
  - MALAISE [None]
  - DECREASED APPETITE [None]
  - DYSPNOEA [None]
